FAERS Safety Report 8492018-7 (Version None)
Quarter: 2012Q2

REPORT INFORMATION
  Report Type: 
  Country: None (occurrence: None)
  Receive Date: 20120627
  Receipt Date: 20120604
  Transmission Date: 20120825
  Serious: Yes (Hospitalization)
  Sender: FDA-Public Use
  Company Number: ZYD-12-AE-131

PATIENT
  Sex: Female

DRUGS (1)
  1. LOSARTAN POTASSIUM [Suspect]

REACTIONS (3)
  - BLOOD PRESSURE INCREASED [None]
  - BLOOD POTASSIUM DECREASED [None]
  - PRODUCT QUALITY ISSUE [None]
